FAERS Safety Report 8919405 (Version 2)
Quarter: 2012Q4

REPORT INFORMATION
  Report Type: Spontaneous
  Country: DK (occurrence: None)
  Receive Date: 20121114
  Receipt Date: 20121212
  Transmission Date: 20130627
  Serious: Yes (Death, Hospitalization, Other)
  Sender: FDA-Public Use
  Company Number: ACO_32874_2012

PATIENT
  Age: 47 Year
  Sex: Male

DRUGS (8)
  1. FAMPYRA [Suspect]
     Indication: GAIT DISTURBANCE
     Route: 048
     Dates: start: 201208, end: 20120831
  2. HYDROCHLOROTHIAZIDE W/LOSARTAN (HYDROCHLOROTHIAZIDE W/LOSARTAN) [Concomitant]
  3. DETRUSITOL (TOLTERODINE L-TARTRATE) [Concomitant]
  4. REBIF (INTERFERON BETA-1A) [Concomitant]
  5. LACTULOSE (LACTULOSE) [Concomitant]
  6. KONAKION (PHYTOMENADIONE) [Concomitant]
  7. INTERFERON (INTERFERON ALFA-2B) [Concomitant]
  8. ANTABUSE (DISULFIRAM) [Concomitant]

REACTIONS (10)
  - Cardiac arrest [None]
  - Hepatic necrosis [None]
  - Acute hepatic failure [None]
  - Depressed level of consciousness [None]
  - Hepatitis toxic [None]
  - Ascites [None]
  - Infarction [None]
  - Arteriosclerosis coronary artery [None]
  - Hydrothorax [None]
  - Arteriosclerosis [None]
